FAERS Safety Report 6538362-1 (Version None)
Quarter: 2010Q1

REPORT INFORMATION
  Report Type: 
  Country: None (occurrence: None)
  Receive Date: 20100110
  Receipt Date: 20091228
  Transmission Date: 20100710
  Serious: Yes (Hospitalization)
  Sender: FDA-Public Use
  Company Number: WAES 0912USA03010

PATIENT
  Age: 62 Year
  Sex: Male

DRUGS (10)
  1. JANUVIA [Suspect]
     Indication: TYPE 2 DIABETES MELLITUS
     Dosage: 50 MG/DAILY; PO
     Route: 048
     Dates: start: 20090902
  2. TAB BLINDED THERAPY [Suspect]
     Indication: TYPE 2 DIABETES MELLITUS
     Route: 048
     Dates: start: 20090513, end: 20090901
  3. ARTIST [Concomitant]
  4. ASPIRIN [Concomitant]
  5. CRESTOR [Concomitant]
  6. MOHRUS [Concomitant]
  7. NOVOLIN R [Concomitant]
  8. PANALDINE [Concomitant]
  9. PARIET [Concomitant]
  10. RENIVACE [Concomitant]

REACTIONS (1)
  - IN-STENT ARTERIAL RESTENOSIS [None]
